FAERS Safety Report 5900162-0 (Version None)
Quarter: 2008Q3

REPORT INFORMATION
  Report Type: 
  Country: None (occurrence: None)
  Receive Date: 20080926
  Receipt Date: 20080918
  Transmission Date: 20090109
  Serious: Yes (Other)
  Sender: FDA-Public Use
  Company Number: US-SANOFI-SYNTHELABO-A03200802470

PATIENT
  Sex: Male

DRUGS (3)
  1. AVODART [Concomitant]
     Indication: DRUG USE FOR UNKNOWN INDICATION
     Dosage: UNK
     Route: 065
     Dates: start: 20070101
  2. UROXATRAL [Suspect]
     Indication: PROSTATOMEGALY
     Route: 048
     Dates: start: 20080301, end: 20080523
  3. UROXATRAL [Suspect]
     Route: 048
     Dates: start: 20080526, end: 20080801

REACTIONS (9)
  - ATRIAL FIBRILLATION [None]
  - DIARRHOEA [None]
  - DIZZINESS [None]
  - DYSPNOEA [None]
  - FATIGUE [None]
  - FEELING ABNORMAL [None]
  - PALPITATIONS [None]
  - PRESYNCOPE [None]
  - SOMNOLENCE [None]
